FAERS Safety Report 19678247 (Version 3)
Quarter: 2021Q3

REPORT INFORMATION
  Report Type: Spontaneous
  Country: JP (occurrence: JP)
  Receive Date: 20210809
  Receipt Date: 20210901
  Transmission Date: 20211014
  Serious: Yes (Death, Hospitalization)
  Sender: FDA-Public Use
  Company Number: JP-ASTRAZENECA-2021A670089

PATIENT
  Age: 64 Year
  Sex: Male
  Weight: 58 kg

DRUGS (7)
  1. AMBROXOL HYDROCHLORIDE [Concomitant]
     Active Substance: AMBROXOL HYDROCHLORIDE
     Route: 048
     Dates: start: 20210421, end: 20210712
  2. NAIXAN [Concomitant]
     Active Substance: NAPROXEN SODIUM
     Route: 048
     Dates: start: 20210430, end: 20210712
  3. IMFINZI [Suspect]
     Active Substance: DURVALUMAB
     Indication: NON-SMALL CELL LUNG CANCER
     Route: 041
     Dates: start: 20210615, end: 20210615
  4. MAGNESIUM OXIDE. [Concomitant]
     Active Substance: MAGNESIUM OXIDE
     Route: 048
     Dates: start: 20210408, end: 20210712
  5. DIHYDROCODEINE PHOSPHATE [Concomitant]
     Active Substance: DIHYDROCODEINE PHOSPHATE
     Route: 048
     Dates: start: 20210419, end: 20210712
  6. ASTOMIN [Concomitant]
     Route: 048
     Dates: start: 20210413, end: 20210712
  7. LANSOPRAZOLE OD [Concomitant]
     Active Substance: LANSOPRAZOLE
     Route: 048
     Dates: start: 20210430, end: 20210712

REACTIONS (4)
  - Restlessness [Unknown]
  - Insomnia [Unknown]
  - Interstitial lung disease [Fatal]
  - Vomiting [Unknown]

NARRATIVE: CASE EVENT DATE: 20210621
